FAERS Safety Report 6419019-4 (Version None)
Quarter: 2009Q4

REPORT INFORMATION
  Report Type: 
  Country: None (occurrence: None)
  Receive Date: 20091029
  Receipt Date: 20091020
  Transmission Date: 20100525
  Serious: Yes (Hospitalization)
  Sender: FDA-Public Use
  Company Number: US-CELGENEUS-163-21880-09082197

PATIENT
  Sex: Female

DRUGS (3)
  1. REVLIMID [Suspect]
     Indication: NON-HODGKIN'S LYMPHOMA
     Route: 048
     Dates: start: 20090501, end: 20091001
  2. REVLIMID [Suspect]
     Route: 048
     Dates: start: 20090401, end: 20090401
  3. REVLIMID [Suspect]
     Dosage: 10-20 MG
     Route: 048
     Dates: start: 20090201, end: 20090401

REACTIONS (1)
  - CHOLECYSTITIS ACUTE [None]
